FAERS Safety Report 4837224-5 (Version None)
Quarter: 2005Q4

REPORT INFORMATION
  Report Type: 
  Country: None (occurrence: None)
  Receive Date: 20051122
  Receipt Date: 20051109
  Transmission Date: 20060501
  Serious: Yes (Life-Threatening, Hospitalization)
  Sender: FDA-Public Use
  Company Number: 2005136072

PATIENT
  Age: 74 Year
  Sex: Male

DRUGS (11)
  1. MACUGEN [Suspect]
     Indication: MACULAR DEGENERATION
     Dosage: (0.3 MG), INTRAOCULAR
     Route: 031
     Dates: start: 20050901, end: 20050901
  2. QUIXIN [Suspect]
     Indication: PROPHYLAXIS
     Dosage: TOPICAL
     Route: 061
     Dates: start: 20050922
  3. LIDOCAINE W/EPINEPHRINE ^EGYT ^ [Suspect]
     Indication: ANAESTHESIA
     Dosage: TOPICAL
     Route: 061
     Dates: start: 20050922
  4. LISINOPRIL [Concomitant]
  5. METFORMIN HCL [Concomitant]
  6. DILTIAZEM [Concomitant]
  7. GLYBURIDE [Concomitant]
  8. FUROSEMIDE [Concomitant]
  9. ZOCOR [Concomitant]
  10. OXYBUTYNIN CHLORIDE [Concomitant]
  11. RABEPRAZOLE SODIUM [Concomitant]

REACTIONS (2)
  - ANAPHYLACTIC SHOCK [None]
  - DRUG HYPERSENSITIVITY [None]
